FAERS Safety Report 15089978 (Version 2)
Quarter: 2018Q4

REPORT INFORMATION
  Report Type: Report from Study
  Country: GB (occurrence: GB)
  Receive Date: 20180629
  Receipt Date: 20181217
  Transmission Date: 20190204
  Serious: Yes (Hospitalization)
  Sender: FDA-Public Use
  Company Number: GB-ROCHE-1598734

PATIENT
  Age: 78 Year
  Sex: Female
  Weight: 50 kg

DRUGS (12)
  1. RITUXIMAB. [Suspect]
     Active Substance: RITUXIMAB
     Indication: RHEUMATOID ARTHRITIS
     Dosage: DATE OF LAST DOSE PRIOR TO SAE:22/AUG/2014
     Route: 042
     Dates: start: 20090513
  2. LEVOTHYROXIN [Concomitant]
     Active Substance: LEVOTHYROXINE
  3. FOLIC ACID. [Concomitant]
     Active Substance: FOLIC ACID
  4. LIDOCAINE. [Concomitant]
     Active Substance: LIDOCAINE
     Dosage: 5% PATCHES
     Route: 065
  5. VANCOMYCIN [Concomitant]
     Active Substance: VANCOMYCIN
  6. METHOTREXATE. [Concomitant]
     Active Substance: METHOTREXATE
  7. PARACETAMOL [Concomitant]
     Active Substance: ACETAMINOPHEN
  8. PREDNISOLONE. [Concomitant]
     Active Substance: PREDNISOLONE
  9. HYOSCINE BUTYLBROMIDE [Concomitant]
     Active Substance: BUTYLSCOPOLAMINE
  10. RITUXIMAB. [Suspect]
     Active Substance: RITUXIMAB
     Route: 042
     Dates: start: 20100331
  11. ATORVASTATIN [Concomitant]
     Active Substance: ATORVASTATIN
     Route: 065
  12. TEMAZEPAM. [Concomitant]
     Active Substance: TEMAZEPAM

REACTIONS (5)
  - Urinary tract infection [Unknown]
  - Atrial fibrillation [Unknown]
  - Pneumonia [Recovered/Resolved]
  - Enterocolitis bacterial [Recovered/Resolved]
  - Sepsis [Recovered/Resolved]

NARRATIVE: CASE EVENT DATE: 20170908
